FAERS Safety Report 14690220 (Version 1)
Quarter: 2018Q1

REPORT INFORMATION
  Report Type: Spontaneous
  Country: BR (occurrence: BR)
  Receive Date: 20180328
  Receipt Date: 20180328
  Transmission Date: 20180509
  Serious: Yes (Death, Life-Threatening, Hospitalization, Disabling, Other)
  Sender: FDA-Public Use
  Company Number: BR-BRISTOL-MYERS SQUIBB COMPANY-BMS-2018-028423

PATIENT
  Age: 40 Year
  Sex: Female

DRUGS (1)
  1. OPDIVO [Suspect]
     Active Substance: NIVOLUMAB
     Indication: METASTATIC MALIGNANT MELANOMA
     Dosage: REFUSED
     Route: 042
     Dates: start: 201712, end: 201801

REACTIONS (5)
  - Platelet disorder [Unknown]
  - Coma [Unknown]
  - Sepsis [Fatal]
  - Autoimmune colitis [Fatal]
  - Pneumonia [Fatal]

NARRATIVE: CASE EVENT DATE: 20180124
